FAERS Safety Report 7252515-9 (Version None)
Quarter: 2011Q1

REPORT INFORMATION
  Report Type: 
  Country: None (occurrence: None)
  Receive Date: 20110129
  Receipt Date: 20100422
  Transmission Date: 20110831
  Serious: No
  Sender: FDA-Public Use
  Company Number: PR-ABBOTT-10P-131-0641193-00

PATIENT
  Sex: Female
  Weight: 66.284 kg

DRUGS (4)
  1. METHOTREXATE [Concomitant]
     Indication: RHEUMATOID ARTHRITIS
  2. HUMIRA [Suspect]
     Indication: RHEUMATOID ARTHRITIS
     Route: 058
  3. GLUCOTROL XL [Concomitant]
     Indication: RHEUMATOID ARTHRITIS
     Dosage: 1 TAB =  5 MG
     Route: 048
  4. RELAFEN [Concomitant]
     Indication: RHEUMATOID ARTHRITIS
     Route: 048

REACTIONS (5)
  - ARTHRALGIA [None]
  - DRUG INEFFECTIVE [None]
  - BACK PAIN [None]
  - WEIGHT DECREASED [None]
  - MUSCULOSKELETAL PAIN [None]
